FAERS Safety Report 7627488-7 (Version None)
Quarter: 2011Q3

REPORT INFORMATION
  Report Type: 
  Country: None (occurrence: None)
  Receive Date: 20110721
  Receipt Date: 20110712
  Transmission Date: 20111222
  Serious: Yes (Other)
  Sender: FDA-Public Use
  Company Number: US-ELI_LILLY_AND_COMPANY-US201107004134

PATIENT
  Sex: Female

DRUGS (3)
  1. HUMALOG [Suspect]
     Dosage: UNK UNK, PRN
     Dates: start: 20101101
  2. HUMALOG [Suspect]
     Indication: DIABETES MELLITUS
     Dosage: 6 U, TID
     Dates: start: 20101101
  3. LANTUS [Concomitant]
     Dosage: UNK

REACTIONS (3)
  - INCORRECT DOSE ADMINISTERED [None]
  - VOCAL CORD DISORDER [None]
  - THYROID DISORDER [None]
